FAERS Safety Report 5497864-X (Version None)
Quarter: 2007Q4

REPORT INFORMATION
  Report Type: 
  Country: None (occurrence: None)
  Receive Date: 20071025
  Receipt Date: 20071019
  Transmission Date: 20080405
  Serious: Yes (Other)
  Sender: FDA-Public Use
  Company Number: CN-BAYER-200715733GDS

PATIENT
  Age: 56 Year
  Sex: Male

DRUGS (1)
  1. NEXAVAR [Suspect]
     Indication: RENAL CELL CARCINOMA STAGE UNSPECIFIED
     Dosage: TOTAL DAILY DOSE: 800 MG
     Route: 048
     Dates: start: 20070621, end: 20070908

REACTIONS (7)
  - BLOOD BILIRUBIN INCREASED [None]
  - COMA HEPATIC [None]
  - DIARRHOEA [None]
  - HEPATITIS [None]
  - JAUNDICE [None]
  - RASH [None]
  - TRANSAMINASES INCREASED [None]
